FAERS Safety Report 7247484-1 (Version None)
Quarter: 2011Q1

REPORT INFORMATION
  Report Type: 
  Country: None (occurrence: None)
  Receive Date: 20110127
  Receipt Date: 20110113
  Transmission Date: 20110831
  Serious: Yes (Hospitalization, Other)
  Sender: FDA-Public Use
  Company Number: US-ROCHE-731982

PATIENT
  Sex: Male
  Weight: 68 kg

DRUGS (1)
  1. ACCUTANE [Suspect]
     Indication: ACNE
     Dosage: OTHER INDICATION: BOILS
     Route: 065
     Dates: start: 19950101, end: 19960101

REACTIONS (2)
  - CROHN'S DISEASE [None]
  - INTESTINAL OBSTRUCTION [None]
